FAERS Safety Report 24467443 (Version 1)
Quarter: 2024Q4

REPORT INFORMATION
  Report Type: Report from Study
  Country: US (occurrence: US)
  Receive Date: 20241018
  Receipt Date: 20241018
  Transmission Date: 20250115
  Serious: No
  Sender: ROCHE
  Company Number: US-ROCHE-3573435

PATIENT
  Age: 18 Year

DRUGS (1)
  1. XOLAIR [Suspect]
     Active Substance: OMALIZUMAB
     Indication: Food allergy
     Dosage: UNKNOWN
     Route: 065
     Dates: start: 202403

REACTIONS (4)
  - Urticaria [Unknown]
  - Erythema [Unknown]
  - Throat tightness [Unknown]
  - Hypersensitivity [Unknown]
